FAERS Safety Report 8849401 (Version 1)
Quarter: 2012Q4

REPORT INFORMATION
  Report Type: Spontaneous
  Country: US (occurrence: None)
  Receive Date: 20121018
  Receipt Date: 20121018
  Transmission Date: 20130627
  Serious: Yes (Hospitalization)
  Sender: FDA-Public Use
  Company Number: None

PATIENT
  Age: 50 Year
  Sex: Female
  Weight: 83.46 kg

DRUGS (2)
  1. VIIBRYD [Suspect]
     Indication: DEPRESSION
     Dosage: 10mg daily for 1 week po
     Route: 048
     Dates: start: 20121006, end: 20121012
  2. VIIBRYD [Suspect]
     Dosage: 20mg daily 2nd week po
     Route: 048
     Dates: start: 20121013, end: 20121015

REACTIONS (8)
  - Myocardial infarction [None]
  - Palpitations [None]
  - Palpitations [None]
  - Blood pressure increased [None]
  - Musculoskeletal pain [None]
  - Paraesthesia [None]
  - Dizziness [None]
  - Hyperhidrosis [None]
